FAERS Safety Report 4481050-6 (Version None)
Quarter: 2004Q4

REPORT INFORMATION
  Report Type: 
  Country: None (occurrence: None)
  Receive Date: 20041021
  Receipt Date: 20041012
  Transmission Date: 20050328
  Serious: Yes (Other)
  Sender: FDA-Public Use
  Company Number: US-JNJFOC-20041004561

PATIENT
  Age: 26 Year
  Sex: Male

DRUGS (8)
  1. TOPAMAX [Suspect]
     Indication: DRUG USE FOR UNKNOWN INDICATION
     Route: 049
  2. LEXAPRO [Concomitant]
  3. AXERT [Concomitant]
  4. MIDRIN [Concomitant]
  5. MIDRIN [Concomitant]
  6. MIDRIN [Concomitant]
  7. CORGARD [Concomitant]
  8. ZONICIMIDE [Concomitant]

REACTIONS (1)
  - FACIAL PALSY [None]
